FAERS Safety Report 5886190-2 (Version None)
Quarter: 2008Q3

REPORT INFORMATION
  Report Type: 
  Country: None (occurrence: None)
  Receive Date: 20080917
  Receipt Date: 20080905
  Transmission Date: 20090109
  Serious: Yes (Other)
  Sender: FDA-Public Use
  Company Number: ZA-ROCHE-577649

PATIENT
  Sex: Male
  Weight: 55 kg

DRUGS (2)
  1. ROACCUTANE [Suspect]
     Indication: ACNE
     Route: 048
     Dates: start: 20080301
  2. ROACCUTANE [Suspect]
     Route: 048

REACTIONS (2)
  - FEELING HOT [None]
  - SKIN DISCOLOURATION [None]
